FAERS Safety Report 5927708-0 (Version None)
Quarter: 2008Q4

REPORT INFORMATION
  Report Type: 
  Country: None (occurrence: None)
  Receive Date: 20081023
  Receipt Date: 20081013
  Transmission Date: 20090506
  Serious: Yes (Life-Threatening, Hospitalization)
  Sender: FDA-Public Use
  Company Number: FR-NOVOPROD-278667

PATIENT
  Age: 59 Year
  Sex: Male

DRUGS (5)
  1. NOVONORM [Suspect]
     Indication: DRUG USE FOR UNKNOWN INDICATION
     Dosage: 140 MG, SINGLE
     Route: 048
     Dates: start: 20080630, end: 20080630
  2. TAHOR [Suspect]
     Dosage: 60 MG, SINGLE
     Route: 048
     Dates: start: 20080630, end: 20080630
  3. MICARDIS [Suspect]
     Dosage: 800 MG, SINGLE
     Route: 048
     Dates: start: 20080630, end: 20080630
  4. MS CONTIN [Suspect]
     Dosage: 1400 MG, SINGLE
     Route: 048
     Dates: start: 20080630, end: 20080630
  5. NARCAN [Suspect]
     Dates: start: 20080630

REACTIONS (2)
  - COMA [None]
  - INTENTIONAL OVERDOSE [None]
